FAERS Safety Report 7735383-8 (Version None)
Quarter: 2011Q3

REPORT INFORMATION
  Report Type: 
  Country: None (occurrence: None)
  Receive Date: 20110907
  Receipt Date: 20110901
  Transmission Date: 20111222
  Serious: Yes (Life-Threatening, Hospitalization)
  Sender: FDA-Public Use
  Company Number: FR-PFIZER INC-2011203843

PATIENT
  Age: 21 Year
  Sex: Female

DRUGS (6)
  1. TRIPHASIL-21 [Suspect]
     Route: 048
  2. DEPAKOTE [Suspect]
     Dosage: 750 MG, 1X/DAY
     Route: 048
     Dates: start: 20110810
  3. ESCITALOPRAM [Suspect]
     Dosage: 10 MG, 2X/DAY
     Route: 048
     Dates: start: 20110728
  4. FERROUS SULFATE TAB [Suspect]
     Route: 048
  5. XANAX [Suspect]
     Route: 048
  6. ZOLPIDEM [Suspect]
     Dosage: 10 MG, 1X/DAY
     Route: 048
     Dates: start: 20110802

REACTIONS (3)
  - DYSPNOEA [None]
  - ACUTE RESPIRATORY DISTRESS SYNDROME [None]
  - EOSINOPHILIC PNEUMONIA [None]
